FAERS Safety Report 4348758-4 (Version None)
Quarter: 2004Q2

REPORT INFORMATION
  Report Type: 
  Country: None (occurrence: None)
  Receive Date: 20040423
  Receipt Date: 20040408
  Transmission Date: 20050107
  Serious: Yes (Other)
  Sender: FDA-Public Use
  Company Number: 231643K04USA

PATIENT
  Age: 43 Year
  Sex: Female

DRUGS (5)
  1. REBIF [Suspect]
     Indication: MULTIPLE SCLEROSIS
     Dosage: 44 MCG, 3 IN 1 WEEKS, SUBCUTANEOUS
     Route: 058
     Dates: start: 20030812
  2. CELECOXIB [Concomitant]
  3. TOPIRMATE [Concomitant]
  4. ESCITALOPRAM [Concomitant]
  5. VALPROATE SODIUM [Concomitant]

REACTIONS (1)
  - CONVULSION [None]
